FAERS Safety Report 8910612 (Version 3)
Quarter: 2013Q3

REPORT INFORMATION
  Report Type: Report from Study
  Country: CA (occurrence: CA)
  Receive Date: 20121114
  Receipt Date: 20130703
  Transmission Date: 20140515
  Serious: Yes (Life-Threatening, Hospitalization, Other)
  Sender: FDA-Public Use
  Company Number: CA-VIIV HEALTHCARE LIMITED-B0843077A

PATIENT
  Age: 51 Year
  Sex: Male
  Weight: 52 kg

DRUGS (8)
  1. MARAVIROC [Suspect]
     Indication: HIV INFECTION
     Dosage: 300MG TWICE PER DAY
     Route: 048
     Dates: start: 20120912
  2. KIVEXA [Concomitant]
     Indication: HIV INFECTION
     Route: 048
     Dates: start: 20090401
  3. LAMIVUDINE-HIV [Concomitant]
     Indication: HIV INFECTION
     Dosage: 300MG PER DAY
     Route: 048
     Dates: start: 20001216
  4. ATAZANAVIR [Concomitant]
     Dosage: 400MG PER DAY
     Dates: start: 20090401, end: 20120911
  5. AMLODIPINE [Concomitant]
     Dosage: 5MG PER DAY
     Dates: start: 20070101
  6. HYDROCHLOROTHIAZIDE + LOSARTAN POTASSIUM [Concomitant]
     Dates: start: 20070101
  7. OMEGA 3 [Concomitant]
     Dates: start: 20080820
  8. VIT D [Concomitant]
     Dates: start: 20090107

REACTIONS (1)
  - Acute myocardial infarction [Recovered/Resolved with Sequelae]
